FAERS Safety Report 18560107 (Version 4)
Quarter: 2020Q4

REPORT INFORMATION
  Report Type: Spontaneous
  Country: US (occurrence: US)
  Receive Date: 20201130
  Receipt Date: 20201230
  Transmission Date: 20210114
  Serious: Yes (Hospitalization)
  Sender: FDA-Public Use
  Company Number: US-VERTEX PHARMACEUTICALS-2020-023393

PATIENT
  Sex: Female
  Weight: 50 kg

DRUGS (2)
  1. TRIKAFTA [Suspect]
     Active Substance: ELEXACAFTOR\IVACAFTOR\TEZACAFTOR
     Indication: CYSTIC FIBROSIS
     Dosage: 2 ORANGE TABS (ELEXA 100 MG/ TEZA 50 MG/ IVA 75 MG) AM AND 1 BLUE TAB(IVA 150 MG) PM
     Route: 048
  2. PULMOZYME [Concomitant]
     Active Substance: DORNASE ALFA

REACTIONS (5)
  - Cough [Unknown]
  - Chest pain [Unknown]
  - Fatigue [Unknown]
  - Infective pulmonary exacerbation of cystic fibrosis [Unknown]
  - Headache [Unknown]

NARRATIVE: CASE EVENT DATE: 2020
